FAERS Safety Report 10161422 (Version 2)
Quarter: 2014Q2

REPORT INFORMATION
  Report Type: Not Available
  Country: FR (occurrence: FR)
  Receive Date: 20140509
  Receipt Date: 20140509
  Transmission Date: 20141212
  Serious: Yes (Hospitalization)
  Sender: FDA-Public Use
  Company Number: FR-BEH-2012031759

PATIENT
  Age: 32 Year
  Sex: Male

DRUGS (23)
  1. PRIVIGEN [Suspect]
     Route: 042
     Dates: start: 20120130
  2. PRIVIGEN [Suspect]
     Indication: PLASMAPHERESIS
     Route: 042
     Dates: start: 20120131
  3. PRIVIGEN [Suspect]
     Route: 042
     Dates: start: 20120203
  4. PRIVIGEN [Suspect]
     Route: 042
     Dates: start: 20120204
  5. PRIVIGEN [Suspect]
     Route: 042
     Dates: start: 20120208
  6. PRIVIGEN [Suspect]
     Route: 042
     Dates: start: 20120209
  7. TEGELINE [Suspect]
     Route: 042
     Dates: start: 20120215
  8. TEGELINE [Suspect]
     Route: 042
     Dates: start: 20120216
  9. TEGELINE [Suspect]
     Indication: PLASMAPHERESIS
     Route: 042
     Dates: start: 20120217
  10. TEGELINE [Suspect]
     Route: 042
     Dates: start: 20120218
  11. MYFORTIC [Suspect]
     Indication: SECONDARY IMMUNODEFICIENCY
     Dosage: 1440 MG/DAY ONGOING
     Route: 048
  12. PROGRAF [Suspect]
     Indication: SECONDARY IMMUNODEFICIENCY
     Dosage: 5.5 MG/DAY ONGOING
     Route: 048
  13. TEGELINE [Concomitant]
     Route: 042
  14. TEGELINE [Concomitant]
     Route: 042
  15. TEGELINE [Concomitant]
     Route: 042
  16. TEGELINE [Concomitant]
     Route: 042
  17. CORTANCYL [Concomitant]
  18. RITUXIMAB [Concomitant]
  19. IMMUNOGLOBULINS [Concomitant]
     Route: 042
  20. PLASMAPHERESIS [Concomitant]
  21. PLASMAPHERESIS [Concomitant]
  22. PLASMAPHERESIS [Concomitant]
  23. PLASMAPHERESIS [Concomitant]

REACTIONS (8)
  - Pancytopenia [Recovered/Resolved]
  - Leukopenia [Recovered/Resolved]
  - Neutropenia [Unknown]
  - Thrombocytopenia [Recovered/Resolved]
  - Lymphopenia [Recovered/Resolved]
  - Anaemia [Recovered/Resolved]
  - Hypofibrinogenaemia [Unknown]
  - Off label use [Unknown]
